FAERS Safety Report 4384959-7 (Version None)
Quarter: 2004Q2

REPORT INFORMATION
  Report Type: 
  Country: None (occurrence: None)
  Receive Date: 20040625
  Receipt Date: 20040615
  Transmission Date: 20050107
  Serious: Yes (Hospitalization)
  Sender: FDA-Public Use
  Company Number: PHNR2004AU01089

PATIENT
  Age: 45 Year

DRUGS (2)
  1. TEGRETOL [Suspect]
     Indication: EPILEPSY
     Dosage: 400 MG, BID
     Dates: start: 19940101
  2. FLUVAX [Suspect]
     Indication: IMMUNISATION
     Dosage: 1.0 DOSE UNSPECIFIED, ONCE
     Dates: start: 20020418

REACTIONS (8)
  - CONVULSION [None]
  - DRUG INTERACTION [None]
  - DRUG LEVEL INCREASED [None]
  - FEELING ABNORMAL [None]
  - MALAISE [None]
  - OEDEMA PERIPHERAL [None]
  - PARAESTHESIA [None]
  - TREMOR [None]
